FAERS Safety Report 6873215-0 (Version None)
Quarter: 2010Q3

REPORT INFORMATION
  Report Type: 
  Country: None (occurrence: None)
  Receive Date: 20100723
  Receipt Date: 20081224
  Transmission Date: 20110219
  Serious: No
  Sender: FDA-Public Use
  Company Number: US-PFIZER INC-2008101056

PATIENT
  Sex: Female
  Weight: 60 kg

DRUGS (3)
  1. CHANTIX [Suspect]
     Indication: SMOKING CESSATION THERAPY
     Dosage: 0.5 MG, 2X/DAY
     Route: 048
     Dates: start: 20081120, end: 20081127
  2. PREMARIN [Concomitant]
  3. REMERON [Concomitant]
     Dosage: UNK

REACTIONS (5)
  - ASTHENIA [None]
  - FATIGUE [None]
  - HYPOGLYCAEMIA [None]
  - MALAISE [None]
  - NERVOUSNESS [None]
